FAERS Safety Report 8630299 (Version 3)
Quarter: 2014Q1

REPORT INFORMATION
  Report Type: Spontaneous
  Country: US (occurrence: US)
  Receive Date: 20120622
  Receipt Date: 20140107
  Transmission Date: 20141002
  Serious: Yes (Hospitalization, Disabling)
  Sender: FDA-Public Use
  Company Number: US-ASTRAZENECA-2012SE36434

PATIENT
  Age: 17107 Day
  Sex: Female

DRUGS (24)
  1. NEXIUM [Suspect]
     Indication: ULCER
     Route: 048
     Dates: start: 20051122
  2. NEXIUM [Suspect]
     Indication: DYSPEPSIA
     Route: 048
     Dates: start: 20051122
  3. NEXIUM [Suspect]
     Indication: ULCER
     Dosage: EVERY DAY
     Route: 048
     Dates: start: 20051122, end: 201203
  4. NEXIUM [Suspect]
     Indication: DYSPEPSIA
     Dosage: EVERY DAY
     Route: 048
     Dates: start: 20051122, end: 201203
  5. NEXIUM [Suspect]
     Indication: ULCER
     Route: 048
     Dates: start: 20120527
  6. NEXIUM [Suspect]
     Indication: DYSPEPSIA
     Route: 048
     Dates: start: 20120527
  7. PRILOSEC [Suspect]
     Route: 048
  8. ROLAIDS [Concomitant]
     Indication: DYSPEPSIA
     Dosage: EVERY DAY
  9. PEPTO BISMOL [Concomitant]
     Indication: DYSPEPSIA
     Dosage: EVERY DAY
  10. TUMS [Concomitant]
     Indication: DYSPEPSIA
     Dosage: EVERY DAY
  11. ZEGERID [Concomitant]
  12. PREVACID [Concomitant]
  13. TAGAMET [Concomitant]
  14. PEPCID [Concomitant]
  15. ZANTAC [Concomitant]
  16. THEOPHYLLINE [Concomitant]
     Indication: ASTHMA
     Dosage: 400 FOUR TIMES A DAY
  17. SINGULAIR [Concomitant]
     Indication: ASTHMA
  18. SINGULAIR [Concomitant]
     Indication: ASTHMA
     Dates: start: 20120527
  19. ELAVIL [Concomitant]
     Indication: SLEEP DISORDER
  20. FLEXERIL [Concomitant]
     Indication: MUSCLE SPASMS
  21. VICODIN [Concomitant]
     Dosage: 500 MG -5 MG, EVERY FOUR TO SIX HOURS AS NEEDED.
     Route: 048
  22. ALPRAZOLAM [Concomitant]
     Dates: start: 20120517
  23. CYCLOBENZAPRINE [Concomitant]
     Dates: start: 20120503
  24. SULFAMETHOXAZOLE [Concomitant]
     Dates: start: 20120519

REACTIONS (15)
  - Arthropathy [Unknown]
  - Bone disorder [Unknown]
  - Hypertension [Unknown]
  - Back disorder [Unknown]
  - Osteoporosis [Unknown]
  - Fibula fracture [Unknown]
  - Osteoarthritis [Unknown]
  - Gastric disorder [Unknown]
  - Foot fracture [Unknown]
  - Tooth loss [Unknown]
  - Fall [Unknown]
  - Cataract [Unknown]
  - Arthritis [Unknown]
  - Chronic obstructive pulmonary disease [Unknown]
  - Diarrhoea [Unknown]
